FAERS Safety Report 8611639-1 (Version None)
Quarter: 2012Q3

REPORT INFORMATION
  Report Type: 
  Country: None (occurrence: None)
  Receive Date: 20120822
  Receipt Date: 20120807
  Transmission Date: 20120928
  Serious: No
  Sender: FDA-Public Use
  Company Number: US-PFIZER INC-2012193398

PATIENT
  Age: 77 Year
  Sex: Female

DRUGS (5)
  1. PROPRANOLOL HCL [Suspect]
     Dosage: 120 MG, UNK
  2. PROPRANOLOL HCL [Suspect]
     Dosage: 20 MG, UNK
  3. PROPRANOLOL HCL [Suspect]
     Dosage: 60 MG, UNK
  4. PROPRANOLOL HCL [Suspect]
     Dosage: 80 MG, UNK
  5. PROPRANOLOL HCL [Suspect]
     Dosage: 10 MG, UNK

REACTIONS (1)
  - BLOOD PRESSURE FLUCTUATION [None]
